FAERS Safety Report 19410972 (Version 1)
Quarter: 2021Q2

REPORT INFORMATION
  Report Type: Spontaneous
  Country: US (occurrence: US)
  Receive Date: 20210614
  Receipt Date: 20210614
  Transmission Date: 20210717
  Serious: Yes (Hospitalization)
  Sender: FDA-Public Use
  Company Number: US-CADILA HEALTHCARE LIMITED-US-ZYDUS-066701

PATIENT

DRUGS (1)
  1. VERAPAMIL [Suspect]
     Active Substance: VERAPAMIL HYDROCHLORIDE
     Indication: PRODUCT USED FOR UNKNOWN INDICATION
     Dosage: 3.6 GRAM
     Route: 048

REACTIONS (5)
  - Overdose [Unknown]
  - Cardiogenic shock [Unknown]
  - Distributive shock [Unknown]
  - Metabolic acidosis [Unknown]
  - Atrioventricular block [Unknown]
